FAERS Safety Report 12241307 (Version 1)
Quarter: 2016Q2

REPORT INFORMATION
  Report Type: Spontaneous
  Country: GB (occurrence: GB)
  Receive Date: 20160406
  Receipt Date: 20160406
  Transmission Date: 20160815
  Serious: Yes (Hospitalization, Disabling)
  Sender: FDA-Public Use
  Company Number: GB-TEVA-648148ACC

PATIENT
  Age: 76 Year
  Sex: Female
  Weight: 47 kg

DRUGS (10)
  1. MEMANTINE. [Concomitant]
     Active Substance: MEMANTINE
  2. PARACETAMOL [Concomitant]
     Active Substance: ACETAMINOPHEN
  3. TRIMETHOPRIM. [Concomitant]
     Active Substance: TRIMETHOPRIM
  4. OMEPRAZOLE. [Concomitant]
     Active Substance: OMEPRAZOLE
  5. SENNA [Concomitant]
     Active Substance: SENNA LEAF\SENNOSIDES\SENNOSIDES A AND B
  6. SERTRALINE [Suspect]
     Active Substance: SERTRALINE HYDROCHLORIDE
     Indication: DEPRESSION
     Route: 048
     Dates: start: 20160301, end: 20160308
  7. BENDROFLUMETHIAZIDE [Concomitant]
     Active Substance: BENDROFLUMETHIAZIDE
  8. FELODIPINE. [Concomitant]
     Active Substance: FELODIPINE
  9. MOMETASONE [Concomitant]
     Active Substance: MOMETASONE
  10. CALCICHEW D3 [Concomitant]
     Active Substance: CALCIUM\CHOLECALCIFEROL

REACTIONS (5)
  - Hyponatraemia [Recovering/Resolving]
  - Vomiting [Unknown]
  - Mobility decreased [Unknown]
  - Lethargy [Unknown]
  - Fall [Unknown]

NARRATIVE: CASE EVENT DATE: 20160308
